FAERS Safety Report 23389989 (Version 1)
Quarter: 2024Q1

REPORT INFORMATION
  Report Type: Spontaneous
  Country: US (occurrence: US)
  Receive Date: 20240111
  Receipt Date: 20240111
  Transmission Date: 20240409
  Serious: Yes (Hospitalization)
  Sender: FDA-Public Use
  Company Number: US-ORG100016242-2024000005

PATIENT
  Sex: Female

DRUGS (3)
  1. BUPIVACAINE [Suspect]
     Active Substance: BUPIVACAINE
     Indication: Transversus abdominis plane block
     Dosage: 266 MG (20 ML), 30 ML OF 0.25% BUPIVACAINE HYDROCHLORIDE AND 30 ML NORMAL SALINE; 40 ML EACH SIDE
     Route: 050
  2. BUPIVACAINE HYDROCHLORIDE [Suspect]
     Active Substance: BUPIVACAINE HYDROCHLORIDE\BUPIVACAINE HYDROCHLORIDE ANHYDROUS
     Indication: Transversus abdominis plane block
     Dosage: 30 ML 20 ML LIPOSOMAL BUPIVACAINE HYDROCHLORIDE AND 30 ML NORMAL SALINE; 40 ML EACH SIDE
     Route: 050
  3. SODIUM CHLORIDE [Suspect]
     Active Substance: SODIUM CHLORIDE
     Indication: Transversus abdominis plane block
     Dosage: 30 ML WITH 30 ML BUPIVACAINE 0.25%,  20 ML LIPOSOMAL BUPIVACAINE HYDROCHLORIDE; 40 ML EACH SIDE
     Route: 050

REACTIONS (1)
  - Hysterectomy [Unknown]
